FAERS Safety Report 7611187-1 (Version None)
Quarter: 2011Q3

REPORT INFORMATION
  Report Type: 
  Country: None (occurrence: None)
  Receive Date: 20110707
  Receipt Date: 20110624
  Transmission Date: 20111222
  Serious: Yes (Hospitalization, Other)
  Sender: FDA-Public Use
  Company Number: US-2011-10439

PATIENT
  Age: 4 Year
  Sex: Female

DRUGS (5)
  1. MELPHALAN HYDROCHLORIDE [Suspect]
     Indication: STEM CELL TRANSPLANT
     Dosage: 60 MG/M2, DAILY DOSE, INTRAVENOUS
     Route: 042
  2. CYCLOSPORINE [Concomitant]
  3. BUSULFAN [Suspect]
     Indication: STEM CELL TRANSPLANT
     Dosage: 0.8 MG/KG, Q6HR, INTRAVENOUS
     Route: 042
  4. THYMOGLOBULIN [Concomitant]
  5. METHOTREXATE [Concomitant]

REACTIONS (10)
  - PULMONARY HYPERTENSION [None]
  - INTERSTITIAL LUNG DISEASE [None]
  - PULMONARY TOXICITY [None]
  - RENAL FAILURE [None]
  - HAEMODIALYSIS [None]
  - TACHYCARDIA [None]
  - ORAL LICHEN PLANUS [None]
  - GRAFT VERSUS HOST DISEASE [None]
  - RESPIRATORY DISTRESS [None]
  - CONGESTIVE CARDIOMYOPATHY [None]
